FAERS Safety Report 7704826-8 (Version None)
Quarter: 2011Q3

REPORT INFORMATION
  Report Type: 
  Country: None (occurrence: None)
  Receive Date: 20110823
  Receipt Date: 20110815
  Transmission Date: 20111222
  Serious: Yes (Death)
  Sender: FDA-Public Use
  Company Number: US-CELGENEUS-163-21880-11081779

PATIENT
  Sex: Male
  Weight: 97.3 kg

DRUGS (7)
  1. ANTIBIOTICS [Concomitant]
     Indication: PNEUMONIA
     Route: 041
     Dates: start: 20110701
  2. DEXAMETHASONE [Suspect]
     Indication: MULTIPLE MYELOMA
     Route: 065
     Dates: start: 20110719, end: 20110729
  3. REVLIMID [Suspect]
     Indication: MULTIPLE MYELOMA
     Dosage: 15 MILLIGRAM
     Route: 048
     Dates: start: 20110719, end: 20110729
  4. ASPIRIN [Concomitant]
     Dosage: 325 MILLIGRAM
     Route: 065
  5. COUMADIN [Concomitant]
     Route: 065
  6. COUMADIN [Concomitant]
     Indication: PULMONARY EMBOLISM
  7. ASPIRIN [Concomitant]
     Indication: PULMONARY EMBOLISM

REACTIONS (1)
  - DEATH [None]
